FAERS Safety Report 5950898-0 (Version None)
Quarter: 2008Q4

REPORT INFORMATION
  Report Type: 
  Country: None (occurrence: None)
  Receive Date: 20081110
  Receipt Date: 20071206
  Transmission Date: 20090506
  Serious: Yes (Other)
  Sender: FDA-Public Use
  Company Number: 1000001514

PATIENT
  Age: 61 Year
  Sex: Female

DRUGS (4)
  1. ESCITALOPRAM OXALATE [Suspect]
     Indication: DEPRESSION
     Dosage: 10 MG (10 MG, 1 IN 1 D), ORAL
     Route: 048
     Dates: start: 20071002, end: 20071025
  2. ESCITALOPRAM OXALATE [Suspect]
     Indication: DEPRESSION
     Dosage: 5 MG (5MG,1 IN 1 D), ORAL : 10 MG (10 MG,1 IN 1 D), ORAL : 5 MG (5 MG,1 IN 1 D) ORAL
     Route: 048
     Dates: start: 20070924, end: 20071001
  3. ESCITALOPRAM OXALATE [Suspect]
     Indication: DEPRESSION
     Dosage: 5 MG (5MG,1 IN 1 D), ORAL : 10 MG (10 MG,1 IN 1 D), ORAL : 5 MG (5 MG,1 IN 1 D) ORAL
     Route: 048
     Dates: start: 20071026
  4. SERTRALINE [Concomitant]

REACTIONS (3)
  - CONDITION AGGRAVATED [None]
  - DEPRESSION [None]
  - PARTIAL SEIZURES [None]
